FAERS Safety Report 18540074 (Version 2)
Quarter: 2020Q4

REPORT INFORMATION
  Report Type: Spontaneous
  Country: US (occurrence: US)
  Receive Date: 20201124
  Receipt Date: 20201215
  Transmission Date: 20210114
  Serious: Yes (Other)
  Sender: FDA-Public Use
  Company Number: US-OCULAR THERAPEUTIX-2020OCX00038

PATIENT

DRUGS (1)
  1. DEXTENZA [Suspect]
     Active Substance: DEXAMETHASONE
     Dosage: UNK
     Dates: start: 2020, end: 2020

REACTIONS (2)
  - Product solubility abnormal [Unknown]
  - Dacryocanaliculitis [Unknown]

NARRATIVE: CASE EVENT DATE: 2020
